FAERS Safety Report 14564801 (Version 3)
Quarter: 2018Q2

REPORT INFORMATION
  Report Type: Spontaneous
  Country: JP (occurrence: JP)
  Receive Date: 20180223
  Receipt Date: 20180619
  Transmission Date: 20180711
  Serious: Yes (Disabling)
  Sender: FDA-Public Use
  Company Number: JP-BRISTOL-MYERS SQUIBB COMPANY-BMS-2018-015279

PATIENT
  Sex: Male
  Weight: 83 kg

DRUGS (11)
  1. SUREPOST [Concomitant]
     Active Substance: REPAGLINIDE
     Indication: TYPE 2 DIABETES MELLITUS
     Dosage: 0.25 MG, BID
     Route: 048
  2. BISOPROLOL FUMARATE. [Concomitant]
     Active Substance: BISOPROLOL FUMARATE
     Indication: MYOCARDIAL INFARCTION
     Dosage: 5 MG, QD
     Route: 048
  3. SEIBULE [Concomitant]
     Active Substance: MIGLITOL
     Indication: TYPE 2 DIABETES MELLITUS
     Dosage: 75 MG, BID
     Route: 048
  4. TENELIA [Concomitant]
     Active Substance: TENELIGLIPTIN
     Indication: TYPE 2 DIABETES MELLITUS
     Dosage: 20 MG, QD
     Route: 048
  5. ELIQUIS [Suspect]
     Active Substance: APIXABAN
     Indication: CEREBROVASCULAR ACCIDENT PROPHYLAXIS
     Dosage: 2.5 MG, BID
     Route: 048
     Dates: start: 20140307, end: 20180216
  6. LANSOPRAZOLE. [Concomitant]
     Active Substance: LANSOPRAZOLE
     Indication: PROPHYLAXIS
     Dosage: 15 MG, QD
     Route: 048
  7. BAYASPIRIN [Concomitant]
     Active Substance: ASPIRIN
     Indication: MYOCARDIAL INFARCTION
     Dosage: 100 MG, QD
     Route: 048
  8. FEBURIC [Concomitant]
     Active Substance: FEBUXOSTAT
     Indication: HYPERURICAEMIA
     Dosage: 20 MG, QD
     Route: 048
  9. DOXAZOSIN [Concomitant]
     Active Substance: DOXAZOSIN\DOXAZOSIN MESYLATE
     Indication: HYPERTENSION
     Dosage: 2 MG, QD
     Route: 048
  10. ZETIA [Concomitant]
     Active Substance: EZETIMIBE
     Indication: DYSLIPIDAEMIA
     Dosage: 10 MG, QD
     Route: 048
  11. NIFEDIPINE. [Concomitant]
     Active Substance: NIFEDIPINE
     Indication: HYPERTENSION
     Dosage: 20 MG, BID
     Route: 048

REACTIONS (2)
  - Off label use [Unknown]
  - Renal disorder [Not Recovered/Not Resolved]
